FAERS Safety Report 19423796 (Version 3)
Quarter: 2021Q2

REPORT INFORMATION
  Report Type: Report from Study
  Country: TR (occurrence: TR)
  Receive Date: 20210616
  Receipt Date: 20210617
  Transmission Date: 20210717
  Serious: Yes (Other)
  Sender: FDA-Public Use
  Company Number: TR-HRAPH01-2015001295

PATIENT
  Sex: Female

DRUGS (2)
  1. DIANE (CYPROTERONE ACETATE\ETHINYL ESTRADIOL) [Suspect]
     Active Substance: CYPROTERONE ACETATE\ETHINYL ESTRADIOL
  2. ELLAONE [Suspect]
     Active Substance: ULIPRISTAL ACETATE
     Route: 048

REACTIONS (6)
  - Genital discharge [Unknown]
  - Drug ineffective [Unknown]
  - Swelling [Unknown]
  - Pain in extremity [Unknown]
  - Unintended pregnancy [Unknown]
  - Menstruation delayed [Unknown]
